FAERS Safety Report 7644497-2 (Version None)
Quarter: 2011Q3

REPORT INFORMATION
  Report Type: 
  Country: None (occurrence: None)
  Receive Date: 20110725
  Receipt Date: 20110718
  Transmission Date: 20111222
  Serious: Yes (Other)
  Sender: FDA-Public Use
  Company Number: GB-ACCORD-009983

PATIENT
  Age: 49 Year
  Sex: Male
  Weight: 81 kg

DRUGS (6)
  1. DIPYRIDAMOLE [Concomitant]
  2. CO-DYDRAMOL(CO-DYDRAMOL) [Concomitant]
  3. SIMVASTATIN [Suspect]
     Indication: PRODUCT USED FOR UNKNOWN INDICATION
  4. TRAMADOL HCL [Concomitant]
  5. ASPIRIN [Concomitant]
  6. RAMIPRIL [Concomitant]

REACTIONS (4)
  - PAIN IN EXTREMITY [None]
  - BLOOD CREATINE PHOSPHOKINASE INCREASED [None]
  - MYALGIA [None]
  - MYOSITIS [None]
